FAERS Safety Report 4808250-7 (Version None)
Quarter: 2005Q4

REPORT INFORMATION
  Report Type: 
  Country: None (occurrence: None)
  Receive Date: 20051021
  Receipt Date: 20041112
  Transmission Date: 20060501
  Serious: No
  Sender: FDA-Public Use
  Company Number: EWC041141517

PATIENT
  Sex: Male

DRUGS (3)
  1. OLANZAPINE [Suspect]
     Indication: SCHIZOPHRENIA, DISORGANISED TYPE
     Dosage: 20 MG DAY
     Dates: start: 20040929
  2. TEMESTA EXPIDET (LORAZEPAM) [Concomitant]
  3. RISPERDAL [Concomitant]

REACTIONS (3)
  - LEUKOPENIA [None]
  - MONOCYTE COUNT INCREASED [None]
  - NEUTROPENIA [None]
